FAERS Safety Report 21348895 (Version 3)
Quarter: 2022Q4

REPORT INFORMATION
  Report Type: Report from Study
  Country: US (occurrence: US)
  Receive Date: 20220919
  Receipt Date: 20221028
  Transmission Date: 20230113
  Serious: Yes (Other)
  Sender: FDA-Public Use
  Company Number: US-NOVARTISPH-NVSC2022US210944

PATIENT
  Age: 65 Year
  Sex: Male

DRUGS (1)
  1. ENTRESTO [Suspect]
     Active Substance: SACUBITRIL\VALSARTAN
     Indication: Cardiac failure congestive
     Dosage: 50 MG, BID (24/26 MG:24.3 MG SACUBITRIL AND 25.7 MG VALSARTAN)
     Route: 048
     Dates: start: 202106

REACTIONS (9)
  - Diabetes mellitus [Unknown]
  - Pain [Unknown]
  - Eye symptom [Unknown]
  - Dyspnoea [Unknown]
  - Chest pain [Unknown]
  - Blood pressure increased [Unknown]
  - Dizziness [Unknown]
  - Throat clearing [Unknown]
  - Product use issue [Unknown]

NARRATIVE: CASE EVENT DATE: 20221001
